FAERS Safety Report 16464345 (Version 1)
Quarter: 2019Q3

REPORT INFORMATION
  Report Type: Spontaneous
  Country: US (occurrence: US)
  Receive Date: 20190620
  Receipt Date: 20190620
  Transmission Date: 20191004
  Serious: Yes (Disabling)
  Sender: FDA-Public Use
  Company Number: None

PATIENT
  Age: 56 Year
  Sex: Female
  Weight: 76.5 kg

DRUGS (3)
  1. LISINOPRIL TABLETS [Suspect]
     Active Substance: LISINOPRIL
     Indication: BLOOD PRESSURE INCREASED
     Route: 048
     Dates: start: 20190530, end: 20190614
  2. METFORMIN [Concomitant]
     Active Substance: METFORMIN HYDROCHLORIDE
     Dates: start: 20171110
  3. ALENDRONATE 70MG TAB [Concomitant]
     Active Substance: ALENDRONATE SODIUM
     Dates: start: 20171015

REACTIONS (6)
  - Fatigue [None]
  - Dry throat [None]
  - Cough [None]
  - Dry mouth [None]
  - Chest pain [None]
  - Middle insomnia [None]

NARRATIVE: CASE EVENT DATE: 20190612
